FAERS Safety Report 10724048 (Version 1)
Quarter: 2015Q1

REPORT INFORMATION
  Report Type: Spontaneous
  Country: US (occurrence: None)
  Receive Date: 20150116
  Receipt Date: 20150116
  Transmission Date: 20150721
  Serious: Yes (Disabling, Other)
  Sender: FDA-Public Use
  Company Number: None

PATIENT
  Age: 65 Year
  Sex: Female
  Weight: 77.11 kg

DRUGS (1)
  1. VALSARTAN. [Suspect]
     Active Substance: VALSARTAN
     Indication: HYPERTENSION
     Route: 048
     Dates: start: 20141119, end: 20141212

REACTIONS (5)
  - Cold sweat [None]
  - Dysgeusia [None]
  - Hypertension [None]
  - Myocardial infarction [None]
  - Dizziness [None]

NARRATIVE: CASE EVENT DATE: 20141212
